FAERS Safety Report 7565912-9 (Version None)
Quarter: 2011Q2

REPORT INFORMATION
  Report Type: 
  Country: None (occurrence: None)
  Receive Date: 20110623
  Receipt Date: 20110609
  Transmission Date: 20111010
  Serious: Yes (Hospitalization, Other)
  Sender: FDA-Public Use
  Company Number: DE-MYLANLABS-2011S1011844

PATIENT
  Sex: Female
  Weight: 62 kg

DRUGS (4)
  1. MIRTAZAPINE [Suspect]
     Indication: DEPRESSION
     Dosage: 45 [MG/D ]/ UNTIL WK 6: 45MG/D, WK 6-14: 30MG/D, WK 14-22.3: 15MG/D
     Route: 048
  2. MIRTAZAPINE [Suspect]
     Route: 048
  3. MIRTAZAPINE [Suspect]
     Route: 048
  4. SEROQUEL [Concomitant]
     Indication: BORDERLINE PERSONALITY DISORDER
     Dosage: 400 [MG/D ]
     Route: 048

REACTIONS (3)
  - INTRA-UTERINE DEATH [None]
  - FOETAL GROWTH RESTRICTION [None]
  - DRUG EXPOSURE DURING PREGNANCY [None]
